FAERS Safety Report 10286492 (Version 1)
Quarter: 2014Q3

REPORT INFORMATION
  Report Type: Spontaneous
  Country: FR (occurrence: FR)
  Receive Date: 20140709
  Receipt Date: 20140709
  Transmission Date: 20150326
  Serious: Yes (Hospitalization)
  Sender: FDA-Public Use
  Company Number: FR-TEVA-492564ISR

PATIENT
  Age: 60 Year
  Sex: Female

DRUGS (4)
  1. PERINDOPRIL BIOGARAN 4MG [Suspect]
     Active Substance: PERINDOPRIL
     Indication: HYPERTENSION
     Dosage: 4 MILLIGRAM DAILY;
     Route: 048
     Dates: start: 20101021, end: 20111106
  2. DEPAMIDE 300MG [Suspect]
     Active Substance: VALPROMIDE
     Indication: DEPRESSION
     Dosage: 900 MILLIGRAM DAILY;
     Route: 048
     Dates: end: 20111106
  3. PAROXETINE TEVA 20MG [Suspect]
     Active Substance: PAROXETINE HYDROCHLORIDE
     Indication: DEPRESSION
     Dosage: 20 MILLIGRAM DAILY;
     Route: 048
     Dates: end: 20111106
  4. ALPRAZOLAM MYLAN 0.25MG [Suspect]
     Active Substance: ALPRAZOLAM
     Dosage: .75 MILLIGRAM DAILY;
     Route: 048
     Dates: end: 20111106

REACTIONS (7)
  - Vomiting [Unknown]
  - Hyperhidrosis [Unknown]
  - Hyperglycaemia [None]
  - Pancreatic pseudocyst [None]
  - Pancreatitis acute [Unknown]
  - Pain [Unknown]
  - Malaise [Unknown]

NARRATIVE: CASE EVENT DATE: 20111106
